FAERS Safety Report 6516136-5 (Version None)
Quarter: 2009Q4

REPORT INFORMATION
  Report Type: 
  Country: None (occurrence: None)
  Receive Date: 20091223
  Receipt Date: 20091214
  Transmission Date: 20100525
  Serious: Yes (Hospitalization, Other)
  Sender: FDA-Public Use
  Company Number: FR-JNJFOC-20091204064

PATIENT
  Age: 24 Year
  Sex: Male

DRUGS (4)
  1. TAVANIC [Suspect]
     Indication: LOCALISED INFECTION
     Route: 048
  2. PYOSTACINE [Suspect]
     Indication: LOCALISED INFECTION
     Route: 048
  3. METHADONE HYDROCHLORIDE [Suspect]
     Indication: DRUG DEPENDENCE
     Route: 048
  4. PREVISCAN (FLUINDIONE) [Suspect]
     Indication: VENOUS THROMBOSIS
     Route: 048

REACTIONS (3)
  - BALANITIS [None]
  - LEUKOCYTOCLASTIC VASCULITIS [None]
  - PURPURA [None]
